FAERS Safety Report 15628587 (Version 1)
Quarter: 2018Q4

REPORT INFORMATION
  Report Type: Spontaneous
  Country: NO (occurrence: NO)
  Receive Date: 20181116
  Receipt Date: 20181116
  Transmission Date: 20190205
  Serious: Yes (Other)
  Sender: FDA-Public Use
  Company Number: NO-009507513-1811NOR005050

PATIENT
  Age: 62 Year
  Sex: Female

DRUGS (9)
  1. HYPROSAN [Concomitant]
     Route: 047
  2. MAXALT [Concomitant]
     Active Substance: RIZATRIPTAN BENZOATE
     Dosage: 10 MILLIGRAM, UNK
     Route: 048
  3. AMLODIPINE [Suspect]
     Active Substance: AMLODIPINE BESYLATE
     Indication: HYPERTENSION
     Dosage: 5 MILLIGRAM, 1 PER DAY
     Route: 048
     Dates: start: 20171116, end: 20180104
  4. PENICILLIN V [Concomitant]
     Active Substance: PENICILLIN V
     Indication: RESPIRATORY TRACT INFECTION
     Dosage: 1 GRAM, 6 PER HOUR
     Route: 048
     Dates: start: 20171025, end: 20171030
  5. PANTOPRAZOLE [Concomitant]
     Active Substance: PANTOPRAZOLE
     Indication: DYSPEPSIA
     Dosage: 20 MILLIGRAM, 1 PER DAY
     Dates: start: 20180201, end: 20180430
  6. AMLODIPINE [Suspect]
     Active Substance: AMLODIPINE BESYLATE
     Dosage: 5 MILLIGRAM, 1 PER DAY
     Dates: start: 20180911, end: 20180928
  7. LOSARTAN POTASSIUM. [Suspect]
     Active Substance: LOSARTAN POTASSIUM
     Indication: HYPERTENSION
     Dosage: 50 MILLIGRAM, 1 PER DAY
     Route: 048
     Dates: start: 20170922, end: 20171116
  8. CIPRALEX [Concomitant]
     Active Substance: ESCITALOPRAM OXALATE
     Indication: DEPRESSION
  9. CIPRALEX [Concomitant]
     Active Substance: ESCITALOPRAM OXALATE
     Indication: ANXIETY
     Dosage: 10 MILLIGRAM, 1 PER DAY
     Route: 048
     Dates: start: 201708, end: 201803

REACTIONS (4)
  - Cough [Recovered/Resolved]
  - Malaise [Recovered/Resolved]
  - Dizziness [Recovered/Resolved]
  - Pancreatitis chronic [Recovered/Resolved]

NARRATIVE: CASE EVENT DATE: 20171110
